FAERS Safety Report 7504320-3 (Version None)
Quarter: 2011Q2

REPORT INFORMATION
  Report Type: 
  Country: None (occurrence: None)
  Receive Date: 20110525
  Receipt Date: 20110513
  Transmission Date: 20111010
  Serious: Yes (Hospitalization)
  Sender: FDA-Public Use
  Company Number: FR-ELI_LILLY_AND_COMPANY-FR201103005610

PATIENT
  Age: 69 Year
  Sex: Male

DRUGS (6)
  1. OLANZAPINE [Suspect]
     Indication: SCHIZOPHRENIA
     Dosage: 300 MG, EVERY 4 WEEKS
     Dates: start: 20100901
  2. ZYPREXA [Concomitant]
     Dosage: UNK, UNKNOWN
     Route: 048
  3. OLANZAPINE [Suspect]
     Dosage: 200 MG, EVERY 4 WEEKS
     Route: 030
     Dates: start: 20110201
  4. TERALHITE [Concomitant]
     Dosage: 4 DF, UNK
     Route: 048
  5. AMARYL [Concomitant]
     Dosage: 4 MG, QD
     Route: 048
  6. LORAZEPAM [Concomitant]
     Dosage: 2.5 MG, UNK
     Route: 048

REACTIONS (5)
  - DISTURBANCE IN ATTENTION [None]
  - DYSARTHRIA [None]
  - CONFUSIONAL STATE [None]
  - HYPOTENSION [None]
  - SEDATION [None]
